FAERS Safety Report 10998073 (Version 2)
Quarter: 2015Q2

REPORT INFORMATION
  Report Type: Spontaneous
  Country: US (occurrence: US)
  Receive Date: 20150408
  Receipt Date: 20150601
  Transmission Date: 20150821
  Serious: No
  Sender: FDA-Public Use
  Company Number: US-ASTRAZENECA-2006UW14686

PATIENT
  Age: 55 Year
  Sex: Female
  Weight: 108.9 kg

DRUGS (13)
  1. INVOKANA [Concomitant]
     Active Substance: CANAGLIFLOZIN
  2. PLAXIL [Concomitant]
  3. BYDUREON [Suspect]
     Active Substance: EXENATIDE
     Indication: TYPE 2 DIABETES MELLITUS
     Route: 058
     Dates: start: 201503
  4. FUROSEMIDE. [Concomitant]
     Active Substance: FUROSEMIDE
  5. ADVAIR HFA [Concomitant]
     Active Substance: FLUTICASONE PROPIONATE\SALMETEROL XINAFOATE
  6. TOPROL XL [Suspect]
     Active Substance: METOPROLOL SUCCINATE
     Indication: ANGINA PECTORIS
     Route: 048
  7. NORVASC [Concomitant]
     Active Substance: AMLODIPINE BESYLATE
  8. TOPROL XL [Suspect]
     Active Substance: METOPROLOL SUCCINATE
     Indication: HYPERTENSION
     Route: 048
  9. ASTELIN [Concomitant]
     Active Substance: AZELASTINE HYDROCHLORIDE
     Route: 045
  10. TOPROL XL [Suspect]
     Active Substance: METOPROLOL SUCCINATE
     Indication: ARRHYTHMIA
     Route: 048
  11. ENALAPRIL [Concomitant]
     Active Substance: ENALAPRIL
  12. SINGULAIR [Concomitant]
     Active Substance: MONTELUKAST SODIUM
  13. DARVOCET [Concomitant]
     Active Substance: ACETAMINOPHEN\PROPOXYPHENE HYDROCHLORIDE

REACTIONS (10)
  - Fungal infection [Unknown]
  - Oedema [Unknown]
  - Colitis [Unknown]
  - Cough [Not Recovered/Not Resolved]
  - Intentional product misuse [Unknown]
  - Back pain [Unknown]
  - Wheezing [Not Recovered/Not Resolved]
  - Weight decreased [Unknown]
  - Blood glucose increased [Recovering/Resolving]
  - Nausea [Unknown]
